FAERS Safety Report 24408151 (Version 1)
Quarter: 2024Q4

REPORT INFORMATION
  Report Type: Spontaneous
  Country: US (occurrence: US)
  Receive Date: 20241007
  Receipt Date: 20241007
  Transmission Date: 20250115
  Serious: No
  Sender: MYLAN
  Company Number: US-MYLANLABS-2024M1087497

PATIENT
  Sex: Male
  Weight: 63.5 kg

DRUGS (1)
  1. METHOTREXATE SODIUM [Suspect]
     Active Substance: METHOTREXATE SODIUM
     Indication: Rheumatoid arthritis
     Dosage: 15 MILLIGRAM, QW (ONCE A WEEK)
     Route: 048

REACTIONS (2)
  - Feeling abnormal [Unknown]
  - Product substitution issue [Unknown]
